FAERS Safety Report 19962917 (Version 1)
Quarter: 2021Q4

REPORT INFORMATION
  Report Type: Spontaneous
  Country: BR (occurrence: BR)
  Receive Date: 20211018
  Receipt Date: 20211018
  Transmission Date: 20220303
  Serious: Yes (Other)
  Sender: FDA-Public Use
  Company Number: BR-ABBVIE-21K-020-4119021-00

PATIENT
  Age: 19 Year
  Sex: Female
  Weight: 50 kg

DRUGS (7)
  1. DEPAKOTE [Suspect]
     Active Substance: DIVALPROEX SODIUM
     Indication: Product used for unknown indication
     Route: 048
     Dates: start: 20190305
  2. BUTYLSCOPOLAMINE BROMIDE\DIPYRONE [Suspect]
     Active Substance: BUTYLSCOPOLAMINE BROMIDE\DIPYRONE
     Indication: Product used for unknown indication
     Route: 048
     Dates: start: 20190305
  3. TENOXICAM [Suspect]
     Active Substance: TENOXICAM
     Indication: Product used for unknown indication
     Route: 048
     Dates: start: 20190305
  4. NIMESULIDE [Suspect]
     Active Substance: NIMESULIDE
     Indication: Product used for unknown indication
     Route: 048
     Dates: start: 20190305
  5. NAPROXEN [Suspect]
     Active Substance: NAPROXEN
     Indication: Product used for unknown indication
     Route: 048
     Dates: start: 20190305
  6. PAROXETINE HYDROCHLORIDE [Suspect]
     Active Substance: PAROXETINE HYDROCHLORIDE
     Indication: Product used for unknown indication
     Route: 048
     Dates: start: 20190305
  7. ACETAMINOPHEN\CAFFEINE\CARISOPRODOL\DICLOFENAC SODIUM [Suspect]
     Active Substance: ACETAMINOPHEN\CAFFEINE\CARISOPRODOL\DICLOFENAC SODIUM
     Indication: Product used for unknown indication
     Route: 048
     Dates: start: 20190305

REACTIONS (5)
  - Intentional overdose [Recovered/Resolved]
  - Loss of consciousness [Recovered/Resolved]
  - Suicide attempt [Recovered/Resolved]
  - Somnolence [Unknown]
  - Vomiting [Unknown]

NARRATIVE: CASE EVENT DATE: 20190305
